FAERS Safety Report 9468379 (Version 2)
Quarter: 2014Q2

REPORT INFORMATION
  Report Type: Spontaneous
  Country: US (occurrence: US)
  Receive Date: 20130821
  Receipt Date: 20140521
  Transmission Date: 20141212
  Serious: No
  Sender: FDA-Public Use
  Company Number: US-PFIZER INC-2013240541

PATIENT
  Age: 68 Year
  Sex: Female

DRUGS (14)
  1. PEPCID [Concomitant]
     Dosage: 20 MG, UNK
  2. PREDNISONE [Concomitant]
     Dosage: 10 MG, UNK
  3. PRILOSEC [Concomitant]
     Dosage: 20 MG, UNK
  4. SULFASALAZINE [Concomitant]
     Dosage: 500 MG, UNK
  5. TRAMADOL HYDROCHLORIDE [Concomitant]
     Dosage: 50 MG, UNK
  6. VITAMIN B6 [Concomitant]
     Dosage: 250 MG, UNK
  7. VITAMIN D [Concomitant]
     Dosage: 1000 UNK
  8. XELJANZ [Suspect]
     Indication: RHEUMATOID ARTHRITIS
     Dosage: 5 MG, 2X/DAY (1 TABLET BY MOUTH)
     Route: 048
  9. METHOTREXATE SODIUM [Suspect]
     Dosage: UNK
  10. DIOVAN [Concomitant]
     Dosage: UNK
  11. HCT [Concomitant]
     Dosage: UNK
  12. LASIX [Concomitant]
     Dosage: 40 MG, UNK
  13. LEFLUNOMIDE [Concomitant]
     Dosage: 10 MG, UNK
  14. MULTIVITAMINS [Concomitant]
     Dosage: UNK

REACTIONS (1)
  - Malaise [Unknown]
